FAERS Safety Report 9699319 (Version 1)
Quarter: 2013Q4

REPORT INFORMATION
  Report Type: Spontaneous
  Country: US (occurrence: US)
  Receive Date: 20131120
  Receipt Date: 20131120
  Transmission Date: 20140711
  Serious: No
  Sender: FDA-Public Use
  Company Number: US-GILEAD-2008-0015514

PATIENT
  Sex: Female
  Weight: 67.58 kg

DRUGS (7)
  1. LETAIRIS [Suspect]
     Indication: PULMONARY ARTERIAL HYPERTENSION
     Route: 048
  2. VENTAVIS [Concomitant]
     Route: 055
  3. REVATIO [Concomitant]
     Route: 048
  4. TORSEMIDE [Concomitant]
     Route: 048
  5. METOLAZONE [Concomitant]
     Route: 048
  6. SPIRONOLACTONE [Concomitant]
     Route: 048
  7. SYNTHROID [Concomitant]
     Route: 048

REACTIONS (2)
  - Malaise [None]
  - Nasal congestion [None]
